FAERS Safety Report 12857372 (Version 1)
Quarter: 2016Q4

REPORT INFORMATION
  Report Type: Report from Study
  Country: AU (occurrence: AU)
  Receive Date: 20161018
  Receipt Date: 20161018
  Transmission Date: 20170207
  Serious: Yes (Death, Other)
  Sender: FDA-Public Use
  Company Number: AU-ASTRAZENECA-2014SE31654

PATIENT
  Age: 78 Year
  Sex: Male

DRUGS (2)
  1. ZOLADEX [Suspect]
     Active Substance: GOSERELIN ACETATE
     Route: 058
     Dates: start: 20100901
  2. CASODEX [Suspect]
     Active Substance: BICALUTAMIDE
     Dosage: DROPPED HIS COSUDEX TO EVERY 2ND DAY AND THEN STOPPED IT ALTOGETHER
     Route: 048
     Dates: start: 201009

REACTIONS (14)
  - Depression [Recovering/Resolving]
  - Dysstasia [Not Recovered/Not Resolved]
  - Intentional product misuse [Unknown]
  - Metastases to bone [Not Recovered/Not Resolved]
  - Loss of libido [Recovering/Resolving]
  - Disorientation [Not Recovered/Not Resolved]
  - Erectile dysfunction [Recovering/Resolving]
  - Tibia fracture [Recovered/Resolved]
  - Death [Fatal]
  - Fatigue [Not Recovered/Not Resolved]
  - Weight increased [Recovering/Resolving]
  - Osteoporosis [Not Recovered/Not Resolved]
  - Fall [Recovered/Resolved]
  - Feeling abnormal [Not Recovered/Not Resolved]

NARRATIVE: CASE EVENT DATE: 201009
